FAERS Safety Report 16340187 (Version 2)
Quarter: 2019Q2

REPORT INFORMATION
  Report Type: Spontaneous
  Country: DE (occurrence: DE)
  Receive Date: 20190522
  Receipt Date: 20190613
  Transmission Date: 20190711
  Serious: Yes (Life-Threatening, Hospitalization, Other)
  Sender: FDA-Public Use
  Company Number: DE-AUROBINDO-AUR-APL-2019-028260

PATIENT

DRUGS (1)
  1. TAMSULOSIN 0.4MG [Suspect]
     Active Substance: TAMSULOSIN
     Indication: BENIGN PROSTATIC HYPERPLASIA
     Dosage: 0.4 MILLIGRAM, 1 TOTAL, ABENDS NUR 1 EINGENOMMEN
     Route: 048
     Dates: start: 20180925

REACTIONS (1)
  - Ileus paralytic [Recovered/Resolved with Sequelae]

NARRATIVE: CASE EVENT DATE: 20180926
